FAERS Safety Report 9128371 (Version 2)
Quarter: 2016Q1

REPORT INFORMATION
  Report Type: Spontaneous
  Country: US (occurrence: US)
  Receive Date: 20130228
  Receipt Date: 20160111
  Transmission Date: 20160526
  Serious: No
  Sender: FDA-Public Use
  Company Number: US-GLAXOSMITHKLINE-A0971530A

PATIENT
  Sex: Female

DRUGS (2)
  1. SUMATRIPTAN. [Suspect]
     Active Substance: SUMATRIPTAN
     Dosage: UNK UNK, U
  2. SUMATRIPTAN TABLET [Suspect]
     Active Substance: SUMATRIPTAN
     Dosage: 50 MG, PRN

REACTIONS (2)
  - Rash [Unknown]
  - Drug effect decreased [Unknown]
